FAERS Safety Report 8691157 (Version 2)
Quarter: 2012Q4

REPORT INFORMATION
  Report Type: 
  Country: US (occurrence: None)
  Receive Date: 20120711
  Receipt Date: 20120917
  Transmission Date: 20130627
  Serious: Yes (Other)
  Sender: FDA-Public Use
  Company Number: 2012AP002007

PATIENT
  Age: 73 Year
  Sex: Female

DRUGS (3)
  1. AMIODARONE HYDROCHLORIDE [Suspect]
     Indication: TACHYARRHYTHMIA
  2. AMIODARONE HYDROCHLORIDE [Suspect]
     Indication: OFF LABEL USE
  3. LEVOTHYROXINE SODIUM [Concomitant]

REACTIONS (3)
  - Dysphagia [None]
  - Off label use [None]
  - Myopathy [None]
